FAERS Safety Report 13356399 (Version 2)
Quarter: 2020Q2

REPORT INFORMATION
  Report Type: Spontaneous
  Country: NO (occurrence: NO)
  Receive Date: 20170321
  Receipt Date: 20200520
  Transmission Date: 20200713
  Serious: Yes (Death, Other)
  Sender: FDA-Public Use
  Company Number: PHHY2017NO036031

PATIENT
  Age: 25 Year
  Sex: Female

DRUGS (6)
  1. CYTARABINE. [Suspect]
     Active Substance: CYTARABINE
     Indication: PRODUCT USED FOR UNKNOWN INDICATION
     Dosage: GIVEN ACCORDING TO NOPHO PROTOCOL
     Route: 037
     Dates: start: 20160628
  2. CYTARABINE. [Suspect]
     Active Substance: CYTARABINE
     Dosage: GIVEN ACCORDING TO NOPHO PROTOCOL, ONE TIME WEEKLY
     Route: 037
     Dates: start: 20160919, end: 20161115
  3. PREDNISOLON [Suspect]
     Active Substance: PREDNISOLONE
     Indication: ACUTE LYMPHOCYTIC LEUKAEMIA
     Dosage: UNK (GIVEN ACCORDING TO NOPHO PROTOCOL)
     Route: 037
     Dates: start: 20160628
  4. METHOTREXATE. [Suspect]
     Active Substance: METHOTREXATE
     Dosage: GIVEN ACCORDING TO NOPHO PROTOCOL, ONE TIME WEEKLY
     Route: 037
     Dates: start: 20160919, end: 20161115
  5. PREDNISOLON [Suspect]
     Active Substance: PREDNISOLONE
     Dosage: GIVEN ACCORDING TO NOPHO PROTOCOL, ONE TIME WEEKLY
     Route: 037
     Dates: start: 20160919, end: 20161115
  6. METHOTREXATE. [Suspect]
     Active Substance: METHOTREXATE
     Indication: ACUTE LYMPHOCYTIC LEUKAEMIA
     Dosage: GIVEN ACCORDING TO NOPHO PROTOCOL, INITIALLY TWO TIMES PER WEEK
     Route: 037
     Dates: start: 20160628, end: 2016

REACTIONS (10)
  - Leukoencephalopathy [Fatal]
  - Myelomalacia [Not Recovered/Not Resolved]
  - Leukaemia recurrent [Fatal]
  - Anal sphincter atony [Not Recovered/Not Resolved]
  - Toxicity to various agents [Not Recovered/Not Resolved]
  - Myelopathy [Fatal]
  - Motor dysfunction [Not Recovered/Not Resolved]
  - Neoplasm recurrence [Unknown]
  - Neurogenic bladder [Not Recovered/Not Resolved]
  - Paralysis [Not Recovered/Not Resolved]

NARRATIVE: CASE EVENT DATE: 201608
